FAERS Safety Report 20783097 (Version 1)
Quarter: 2022Q2

REPORT INFORMATION
  Report Type: Spontaneous
  Country: JP (occurrence: JP)
  Receive Date: 20220504
  Receipt Date: 20220504
  Transmission Date: 20220721
  Serious: Yes (Other)
  Sender: FDA-Public Use
  Company Number: JP-009507513-2203JPN000723

PATIENT
  Age: 68 Year
  Sex: Female

DRUGS (1)
  1. KEYTRUDA [Suspect]
     Active Substance: PEMBROLIZUMAB
     Indication: Malignant melanoma in situ
     Dosage: 200 MILLIGRAM, Q3W
     Dates: start: 2018

REACTIONS (6)
  - Immune-mediated adrenal insufficiency [Recovered/Resolved]
  - Proctectomy [Unknown]
  - Lymphadenectomy [Unknown]
  - Endocrine disorder [Recovered/Resolved]
  - Blood sodium decreased [Recovered/Resolved]
  - Decreased appetite [Recovered/Resolved]
